FAERS Safety Report 12985826 (Version 1)
Quarter: 2016Q4

REPORT INFORMATION
  Report Type: Spontaneous
  Country: US (occurrence: US)
  Receive Date: 20161130
  Receipt Date: 20161130
  Transmission Date: 20170207
  Serious: Yes (Other)
  Sender: FDA-Public Use
  Company Number: US-009507513-1611USA012227

PATIENT

DRUGS (1)
  1. ZETIA [Suspect]
     Active Substance: EZETIMIBE
     Dosage: UNK UNK, UNKNOWN
     Route: 048

REACTIONS (3)
  - Gastrostomy [Unknown]
  - Speech disorder [Unknown]
  - Swallow study abnormal [Unknown]
